FAERS Safety Report 8769688 (Version 1)
Quarter: 2012Q4

REPORT INFORMATION
  Report Type: Report from Study
  Country: US (occurrence: US)
  Receive Date: 20120905
  Receipt Date: 20120905
  Transmission Date: 20130627
  Serious: Yes (Other)
  Sender: FDA-Public Use
  Company Number: US-US-EMD SERONO, INC.-7157787

PATIENT
  Sex: Female

DRUGS (1)
  1. REBIF [Suspect]
     Indication: MULTIPLE SCLEROSIS
     Route: 058
     Dates: start: 20080730

REACTIONS (4)
  - Vascular anomaly [Not Recovered/Not Resolved]
  - Fall [Recovered/Resolved]
  - Sciatica [Unknown]
  - Multiple sclerosis relapse [Unknown]
